FAERS Safety Report 21987480 (Version 1)
Quarter: 2023Q1

REPORT INFORMATION
  Report Type: Spontaneous
  Country: GB (occurrence: GB)
  Receive Date: 20230214
  Receipt Date: 20230214
  Transmission Date: 20230417
  Serious: No
  Sender: FDA-Public Use
  Company Number: None

PATIENT
  Age: 56 Year
  Sex: Female
  Weight: 101 kg

DRUGS (18)
  1. CEPHALEXIN [Suspect]
     Active Substance: CEPHALEXIN
     Indication: Product used for unknown indication
     Dosage: 500 MILLIGRAM, QD CAPSULE (AT NIGHT)
     Route: 048
     Dates: start: 20220701, end: 20220822
  2. Adcal [Concomitant]
     Indication: Ill-defined disorder
     Dosage: UNK(TAKE ONE TWICE DAILY FOR A YEAR)
     Route: 065
     Dates: start: 20210423
  3. AMOXICILLIN [Concomitant]
     Active Substance: AMOXICILLIN
     Indication: Ill-defined disorder
     Dosage: UNK (TAKE ONE 3 TIMES/DAY FOR 7DAYS )
     Route: 065
     Dates: start: 20220808, end: 20220815
  4. ASPIRIN [Concomitant]
     Active Substance: ASPIRIN
     Indication: Ill-defined disorder
     Dosage: UNK (ONE AT THE ONSET OF MIGRAINES)
     Route: 065
     Dates: start: 20220128
  5. CLOBETASONE BUTYRATE [Concomitant]
     Active Substance: CLOBETASONE BUTYRATE
     Indication: Ill-defined disorder
     Dosage: UNK (APPLY 1-2 TIMES/DAY)
     Route: 065
     Dates: start: 20220708, end: 20220713
  6. DOCUSATE SODIUM [Concomitant]
     Active Substance: DOCUSATE SODIUM
     Indication: Ill-defined disorder
     Dosage: UNK (TAKE ONE 4 TIMES/DAY FOR CONSTIPATION)
     Route: 065
     Dates: start: 20211118
  7. FEXOFENADINE [Concomitant]
     Active Substance: FEXOFENADINE HYDROCHLORIDE
     Indication: Ill-defined disorder
     Dosage: UNK, OD
     Route: 065
     Dates: start: 20220705, end: 20220804
  8. Glucophase [Concomitant]
     Indication: Ill-defined disorder
     Dosage: UNK (METFORMIN MODIFIED-RELEASE: TAKE ONE TABLET TWICE)
     Route: 065
     Dates: start: 20220309
  9. POLYETHYLENE GLYCOL 3350\POTASSIUM CHLORIDE\SODIUM BICARBONATE\SODIUM [Concomitant]
     Active Substance: POLYETHYLENE GLYCOL 3350\POTASSIUM CHLORIDE\SODIUM BICARBONATE\SODIUM CHLORIDE
     Indication: Ill-defined disorder
     Dosage: UNK(TAKE 1 OR 2,TWICE DAILY)
     Route: 065
     Dates: start: 20210423, end: 20220622
  10. LOFEPRAMINE [Concomitant]
     Active Substance: LOFEPRAMINE
     Indication: Ill-defined disorder
     Dosage: UNK(TAKE ONE TWICE DAILY)
     Route: 065
     Dates: start: 20220309
  11. POLYETHYLENE GLYCOLS [Concomitant]
     Active Substance: POLYETHYLENE GLYCOLS
     Indication: Ill-defined disorder
     Dosage: UNK(TAKE 25 MLS TWICE DAILY)
     Route: 065
     Dates: start: 20211118
  12. NITROFURANTOIN [Concomitant]
     Active Substance: NITROFURANTOIN
     Indication: Ill-defined disorder
     Dosage: UNK(TAKE ONE AT NIGHT, TILL UROGYNAE PROCEDURE)
     Route: 065
     Dates: start: 20220622, end: 20220817
  13. OXYBUTYNIN [Concomitant]
     Active Substance: OXYBUTYNIN
     Indication: Ill-defined disorder
     Dosage: UNK(TAKE ONE THREE TIMES A DAY)
     Route: 065
     Dates: start: 20210423, end: 20220622
  14. PREDNISOLONE [Concomitant]
     Active Substance: PREDNISOLONE
     Indication: Ill-defined disorder
     Dosage: UNK(TAKE 8 TABLETS EVERY MORNING FOR 5 DAYS)
     Route: 065
     Dates: start: 20220708, end: 20220713
  15. ALBUTEROL [Concomitant]
     Active Substance: ALBUTEROL
     Indication: Ill-defined disorder
     Dosage: UNK(INHALE TWO DOSES FOUR TIMES A DAY WHEN REQUIRED)
     Route: 065
     Dates: start: 20220808, end: 20220905
  16. SUMATRIPTAN [Concomitant]
     Active Substance: SUMATRIPTAN
     Indication: Ill-defined disorder
     Dosage: UNK(TAKE ONE AT ONSET OF HEADACHE MAYBE REPEATED A...)
     Route: 065
     Dates: start: 20211231
  17. TRIMETHOPRIM [Concomitant]
     Active Substance: TRIMETHOPRIM
     Indication: Ill-defined disorder
     Dosage: UNK(TAKE ONE TWICE DAILY FOR 7 DAYS THEN ONE DAILY AS PROPHYLAXIS)
     Route: 065
     Dates: start: 20220908
  18. VAGIFEM [Concomitant]
     Active Substance: ESTRADIOL
     Indication: Ill-defined disorder
     Dosage: UNK(INSERT ONE AT NIGHT FOR TWO WEEKS THEN TWICE WE...)
     Route: 065
     Dates: start: 20211126

REACTIONS (1)
  - Pruritus [Recovered/Resolved]

NARRATIVE: CASE EVENT DATE: 20220701
